FAERS Safety Report 12518570 (Version 3)
Quarter: 2016Q3

REPORT INFORMATION
  Report Type: Spontaneous
  Country: US (occurrence: US)
  Receive Date: 20160630
  Receipt Date: 20160908
  Transmission Date: 20161109
  Serious: Yes (Other)
  Sender: FDA-Public Use
  Company Number: US-TEVA-671342USA

PATIENT
  Age: 66 Year
  Sex: Female
  Weight: 81.72 kg

DRUGS (1)
  1. MUPIROCIN. [Suspect]
     Active Substance: MUPIROCIN
     Indication: VAGINAL INFECTION
     Dosage: 6 PERCENT DAILY;
     Route: 067
     Dates: start: 2009

REACTIONS (5)
  - Drug prescribing error [Unknown]
  - Product use issue [Unknown]
  - Klebsiella infection [Unknown]
  - Expired product administered [Unknown]
  - Escherichia infection [Unknown]
